FAERS Safety Report 8386433-X (Version None)
Quarter: 2012Q2

REPORT INFORMATION
  Report Type: 
  Country: None (occurrence: None)
  Receive Date: 20120525
  Receipt Date: 20120518
  Transmission Date: 20120825
  Serious: Yes (Other)
  Sender: FDA-Public Use
  Company Number: US-PFIZER INC-2012123636

PATIENT
  Sex: Female

DRUGS (1)
  1. EPIPEN [Suspect]
     Dosage: 0.3 MG, SINGLE

REACTIONS (5)
  - ACCIDENTAL EXPOSURE [None]
  - INJURY ASSOCIATED WITH DEVICE [None]
  - SKIN DISCOLOURATION [None]
  - BLOOD PRESSURE INCREASED [None]
  - TACHYCARDIA [None]
